FAERS Safety Report 10537556 (Version 1)
Quarter: 2014Q4

REPORT INFORMATION
  Report Type: Spontaneous
  Country: US (occurrence: None)
  Receive Date: 20141022
  Receipt Date: 20141022
  Transmission Date: 20150529
  Serious: Yes (Life-Threatening, Disabling, Other)
  Sender: FDA-Public Use
  Company Number: None

PATIENT
  Age: 50 Year
  Sex: Female
  Weight: 56.7 kg

DRUGS (3)
  1. BACLOFEN. [Suspect]
     Active Substance: BACLOFEN
     Indication: BACK DISORDER
     Dosage: 3 PILLS PER DAY
     Route: 048
     Dates: start: 201403, end: 201405
  2. BACLOFEN. [Suspect]
     Active Substance: BACLOFEN
     Indication: CERVICAL VERTEBRAL FRACTURE
     Dosage: 3 PILLS PER DAY
     Route: 048
     Dates: start: 201403, end: 201405
  3. BACLOFEN. [Suspect]
     Active Substance: BACLOFEN
     Indication: FRACTURE
     Dosage: 3 PILLS PER DAY
     Route: 048
     Dates: start: 201403, end: 201405

REACTIONS (3)
  - Feeding disorder [None]
  - Hallucinations, mixed [None]
  - Fear [None]

NARRATIVE: CASE EVENT DATE: 20140502
